FAERS Safety Report 7417304-0 (Version None)
Quarter: 2011Q2

REPORT INFORMATION
  Report Type: 
  Country: None (occurrence: None)
  Receive Date: 20110415
  Receipt Date: 20110412
  Transmission Date: 20111010
  Serious: Yes (Other)
  Sender: FDA-Public Use
  Company Number: SO-BRISTOL-MYERS SQUIBB COMPANY-15375579

PATIENT
  Age: 7 Year
  Sex: Female

DRUGS (2)
  1. CYCLOSERINE [Interacting]
     Indication: TUBERCULOSIS
     Route: 048
  2. EFAVIRENZ [Suspect]
     Indication: HIV INFECTION

REACTIONS (2)
  - DRUG INTERACTION [None]
  - ACUTE PSYCHOSIS [None]
